FAERS Safety Report 5931890-9 (Version None)
Quarter: 2008Q4

REPORT INFORMATION
  Report Type: 
  Country: None (occurrence: None)
  Receive Date: 20081027
  Receipt Date: 20081016
  Transmission Date: 20090506
  Serious: Yes (Death, Life-Threatening, Hospitalization, Disabling)
  Sender: FDA-Public Use
  Company Number: SE-PFIZER INC-2008087704

PATIENT
  Sex: Male

DRUGS (12)
  1. GENOTROPIN [Suspect]
     Indication: HYPOPITUITARISM
     Dosage: DAILY DOSE:.1MG-FREQ:DAILY
     Route: 058
     Dates: start: 19970522
  2. ATACAND [Concomitant]
     Indication: HYPERTENSION
     Dosage: DAILY DOSE:32MG-FREQ:DAILY
     Dates: start: 20050616
  3. CALCICHEW-D3 [Concomitant]
     Indication: CALCIUM METABOLISM DISORDER
     Dosage: TEXT:1 ST-FREQ:DAILY
     Dates: start: 20021016
  4. EMCONCOR [Concomitant]
     Indication: HYPERTENSION
     Dosage: DAILY DOSE:1.25MG-FREQ:DAILY
     Dates: start: 20061202
  5. FURIX [Concomitant]
     Indication: POLYURIA
     Dosage: DAILY DOSE:60MG-FREQ:DAILY
     Dates: start: 20031006
  6. HYDROCORTISONE [Concomitant]
     Indication: BLOOD CORTISOL DECREASED
     Dosage: DAILY DOSE:20MG-FREQ:DAILY
     Dates: start: 20030729
  7. DIGOXIN [Concomitant]
     Dosage: DAILY DOSE:.13MG-FREQ:DAILY
     Dates: start: 20050822
  8. LEVOTHYROXINE SODIUM [Concomitant]
     Indication: HYPOTHYROIDISM
     Dosage: DAILY DOSE:.1MG-FREQ:DAILY
     Dates: start: 19921101
  9. PREDNISOLONE [Concomitant]
     Indication: ARTERITIS
     Dosage: DAILY DOSE:2.5MG-FREQ:DAILY
     Dates: start: 20030901
  10. SPIRONOLACTONE [Concomitant]
     Indication: HYPERTENSION
     Dosage: DAILY DOSE:25MG-FREQ:DAILY
     Dates: start: 20070915
  11. TESTOSTERONE [Concomitant]
     Indication: HYPOGONADISM
     Dosage: DAILY DOSE:20MG-FREQ:DAILY
     Dates: start: 20080306
  12. WARFARIN SODIUM [Concomitant]
     Indication: PROPHYLAXIS
     Dosage: DAILY DOSE:1.25MG-FREQ:DAILY
     Dates: start: 20031006

REACTIONS (1)
  - DEATH [None]
